FAERS Safety Report 24101758 (Version 1)
Quarter: 2024Q3

REPORT INFORMATION
  Report Type: Spontaneous
  Country: FR (occurrence: FR)
  Receive Date: 20240717
  Receipt Date: 20240717
  Transmission Date: 20241017
  Serious: Yes (Hospitalization, Other)
  Sender: VALIDUS
  Company Number: FR-VALIDUS PHARMACEUTICALS LLC-FR-VDP-2024-019315

PATIENT

DRUGS (7)
  1. FUROSEMIDE [Suspect]
     Active Substance: FUROSEMIDE
     Indication: Dilated cardiomyopathy
     Dosage: 1 DF, QD (1 TABLET IN THE MORNING, THEN FROM 9/20/2021 2 TABLETS PER DAY (40 MG))
     Route: 064
     Dates: start: 20210824, end: 20210919
  2. FUROSEMIDE [Suspect]
     Active Substance: FUROSEMIDE
     Dosage: 2 DF, QD (1 TABLET IN THE MORNING, THEN FROM 9/20/2021 2 TABLETS PER DAY (40 MG))
     Route: 065
     Dates: start: 20210920, end: 20220422
  3. BISOPROLOL FUMARATE [Suspect]
     Active Substance: BISOPROLOL FUMARATE
     Indication: Dilated cardiomyopathy
     Dosage: 5 MG, QD
     Route: 064
     Dates: start: 20210824, end: 20210920
  4. BISOPROLOL FUMARATE [Suspect]
     Active Substance: BISOPROLOL FUMARATE
     Dosage: 5 MG IN THE MORNING, THEN INCREASED TO 5 MG IN THE MORNING AND THE EVENING
     Route: 064
     Dates: start: 20210920, end: 20220427
  5. SPIRONOLACTONE [Suspect]
     Active Substance: SPIRONOLACTONE
     Indication: Dilated cardiomyopathy
     Dosage: 50 MG, QD
     Route: 064
     Dates: start: 20210824, end: 20210920
  6. ENTRESTO [Suspect]
     Active Substance: SACUBITRIL\VALSARTAN
     Indication: Dilated cardiomyopathy
     Dosage: 1 DF, BID (1 TABLET IN THE MORNING AND THE EVENING)
     Route: 064
     Dates: start: 20210824, end: 20210920
  7. DAPAGLIFLOZIN [Suspect]
     Active Substance: DAPAGLIFLOZIN
     Indication: Dilated cardiomyopathy
     Dosage: 10 MG
     Route: 064
     Dates: start: 20210911, end: 20210920

REACTIONS (4)
  - Left ventricular dysfunction [Unknown]
  - Patent ductus arteriosus [Unknown]
  - Maternal exposure during pregnancy [Unknown]
  - Maternal exposure during pregnancy [Unknown]

NARRATIVE: CASE EVENT DATE: 20220427
